FAERS Safety Report 23099911 (Version 1)
Quarter: 2023Q4

REPORT INFORMATION
  Report Type: Spontaneous
  Country: US (occurrence: None)
  Receive Date: 20231023
  Receipt Date: 20231023
  Transmission Date: 20240110
  Serious: Yes (Other)
  Sender: FDA-Public Use
  Company Number: None

PATIENT
  Age: 48 Year
  Sex: Male
  Weight: 111.6 kg

DRUGS (1)
  1. POMALYST [Suspect]
     Active Substance: POMALIDOMIDE
     Indication: Kaposi^s sarcoma
     Dosage: FREQUENCY : DAILY;?
     Route: 048
     Dates: start: 20220330, end: 20230915

REACTIONS (3)
  - Osteonecrosis [None]
  - Peripheral swelling [None]
  - Peripheral venous disease [None]

NARRATIVE: CASE EVENT DATE: 20230912
